FAERS Safety Report 17548583 (Version 2)
Quarter: 2020Q2

REPORT INFORMATION
  Report Type: Spontaneous
  Country: US (occurrence: US)
  Receive Date: 20200317
  Receipt Date: 20200401
  Transmission Date: 20200713
  Serious: No
  Sender: FDA-Public Use
  Company Number: US-HORIZON-KRY-0350-2020

PATIENT
  Age: 44 Year
  Sex: Male

DRUGS (1)
  1. KRYSTEXXA [Suspect]
     Active Substance: PEGLOTICASE
     Indication: GOUT
     Dates: start: 2017

REACTIONS (2)
  - Blood uric acid increased [Unknown]
  - Gout [Recovered/Resolved]

NARRATIVE: CASE EVENT DATE: 201910
